FAERS Safety Report 10578056 (Version 3)
Quarter: 2015Q4

REPORT INFORMATION
  Report Type: Report from Study
  Country: DE (occurrence: DE)
  Receive Date: 20141112
  Receipt Date: 20151201
  Transmission Date: 20160304
  Serious: Yes (Hospitalization, Other)
  Sender: FDA-Public Use
  Company Number: DE-IPSEN BIOPHARMACEUTICALS, INC.-23020080208

PATIENT
  Age: 9 Year
  Sex: Female
  Weight: 21 kg

DRUGS (5)
  1. INCRELEX [Suspect]
     Active Substance: MECASERMIN
     Indication: PRIMARY INSULIN LIKE GROWTH FACTOR-1 DEFICIENCY
     Route: 058
     Dates: start: 20071126, end: 20071211
  2. AMOXICILLIN. [Concomitant]
     Active Substance: AMOXICILLIN
     Indication: UPPER RESPIRATORY TRACT INFECTION
     Dates: start: 20071208, end: 20071211
  3. INCRELEX [Suspect]
     Active Substance: MECASERMIN
     Route: 058
     Dates: end: 20081209
  4. INCRELEX [Suspect]
     Active Substance: MECASERMIN
     Route: 058
     Dates: start: 20070925, end: 20071125
  5. INCRELEX [Suspect]
     Active Substance: MECASERMIN
     Route: 058
     Dates: start: 20081209, end: 20091229

REACTIONS (5)
  - Angioedema [Recovered/Resolved]
  - Injection site induration [Recovered/Resolved]
  - Hypoglycaemia [Recovered/Resolved]
  - Paraesthesia [Recovered/Resolved]
  - Injection site pruritus [Recovered/Resolved]

NARRATIVE: CASE EVENT DATE: 20071211
